FAERS Safety Report 8051377-X (Version None)
Quarter: 2012Q1

REPORT INFORMATION
  Report Type: 
  Country: None (occurrence: None)
  Receive Date: 20120117
  Receipt Date: 20120113
  Transmission Date: 20120608
  Serious: Yes (Life-Threatening)
  Sender: FDA-Public Use
  Company Number: DE-ASTRAZENECA-2012SE02629

PATIENT
  Sex: Female
  Weight: 95 kg

DRUGS (16)
  1. RISPERIDONE [Concomitant]
     Dosage: 0.5
  2. BERITHYROX [Concomitant]
     Dosage: 150
  3. PANTOPRAZOLE [Concomitant]
     Dosage: 20
  4. ROCALTROL [Concomitant]
     Dosage: 0.25
  5. SEROQUEL [Suspect]
     Route: 048
     Dates: start: 20111206
  6. EXELON [Concomitant]
     Dosage: 6
  7. VESICARE [Concomitant]
     Dosage: 5
  8. LANTUS [Concomitant]
  9. TORSEMIDE [Concomitant]
     Dosage: 40
  10. ALLOPURINOL [Concomitant]
     Dosage: 150
  11. APIDRA [Concomitant]
  12. BERODUAL RESPIMAT [Concomitant]
  13. ASPIRIN [Concomitant]
     Dosage: 100
  14. ANAFRANIL [Concomitant]
     Dosage: 75
  15. DIGITOXIN TAB [Concomitant]
     Dosage: 0.07
  16. BISOPROLOL FUMARATE [Concomitant]
     Dosage: 2.5

REACTIONS (3)
  - OEDEMA PERIPHERAL [None]
  - SUICIDAL IDEATION [None]
  - INCREASED APPETITE [None]
